FAERS Safety Report 5457212-8 (Version None)
Quarter: 2007Q3

REPORT INFORMATION
  Report Type: 
  Country: None (occurrence: None)
  Receive Date: 20070918
  Receipt Date: 20070228
  Transmission Date: 20080115
  Serious: No
  Sender: FDA-Public Use
  Company Number: US-ASTRAZENECA-2007UW01407

PATIENT
  Age: 455 Month
  Sex: Female
  Weight: 110.9 kg

DRUGS (5)
  1. SEROQUEL [Suspect]
     Indication: MAJOR DEPRESSION
     Route: 048
     Dates: start: 20000101, end: 20040401
  2. SEROQUEL [Suspect]
     Route: 048
  3. SEROQUEL [Suspect]
     Route: 048
  4. RISPERDAL [Suspect]
     Indication: DEPRESSION
     Dates: start: 19970101
  5. ZYPREXA [Suspect]
     Indication: DEPRESSION
     Dates: start: 19970101, end: 20030101

REACTIONS (10)
  - BLOOD TRIGLYCERIDES INCREASED [None]
  - DIABETES MELLITUS [None]
  - HYPERCHOLESTEROLAEMIA [None]
  - HYPERGLYCAEMIA [None]
  - INFECTIOUS MONONUCLEOSIS [None]
  - MIGRAINE [None]
  - OBESITY [None]
  - OTITIS MEDIA [None]
  - SEBORRHOEA [None]
  - VIRAL INFECTION [None]
